FAERS Safety Report 11132303 (Version 1)
Quarter: 2015Q2

REPORT INFORMATION
  Report Type: Spontaneous
  Country: IN (occurrence: IN)
  Receive Date: 20150522
  Receipt Date: 20150522
  Transmission Date: 20150821
  Serious: Yes (Life-Threatening, Hospitalization, Other)
  Sender: FDA-Public Use
  Company Number: IN-WATSON-2015-09970

PATIENT
  Age: 69 Year
  Sex: Male

DRUGS (6)
  1. LERCANIDIPINE [Suspect]
     Active Substance: LERCANIDIPINE
     Indication: HYPERTENSION
     Dosage: 300 MG, SINGLE
     Route: 048
  2. AMLODIPINE [Suspect]
     Active Substance: AMLODIPINE BESYLATE
     Indication: HYPERTENSION
     Dosage: 50 MG, SINGLE
     Route: 048
  3. GLIMEPIRIDE. [Concomitant]
     Active Substance: GLIMEPIRIDE
     Indication: TYPE 2 DIABETES MELLITUS
     Dosage: 1 MG, BID
     Route: 065
  4. ASPIRIN. [Concomitant]
     Active Substance: ASPIRIN
     Indication: CORONARY ARTERY DISEASE
     Dosage: 150 MG, UNK
     Route: 065
  5. SITAGLIPTIN [Concomitant]
     Active Substance: SITAGLIPTIN
     Indication: TYPE 2 DIABETES MELLITUS
     Dosage: 50 MG, BID
     Route: 065
  6. CLOPIDOGREL [Concomitant]
     Active Substance: CLOPIDOGREL BISULFATE
     Indication: CORONARY ARTERY DISEASE
     Dosage: 75 MG, UNK
     Route: 065

REACTIONS (8)
  - Anuria [Recovered/Resolved]
  - Cardiogenic shock [Recovered/Resolved]
  - Shock [Recovered/Resolved]
  - Anxiety [Recovered/Resolved]
  - Bundle branch block right [Recovered/Resolved]
  - Metabolic acidosis [Recovered/Resolved]
  - Overdose [Recovered/Resolved]
  - Respiratory alkalosis [Recovered/Resolved]
